FAERS Safety Report 7309354 (Version 2)
Quarter: 2020Q3

REPORT INFORMATION
  Report Type: Report from Study
  Country: US (occurrence: US)
  Receive Date: 20100309
  Receipt Date: 20110321
  Transmission Date: 20201105
  Serious: Yes (Hospitalization, Other)
  Sender: FDA-Public Use
  Company Number: US-ROCHE-689166

PATIENT
  Age: 75 Year
  Sex: Female
  Weight: 72.7 kg

DRUGS (5)
  1. .ALPHA.?TOCOPHEROL\DOCONEXENT\ICOSAPENT [Concomitant]
     Dosage: DRUG: OMEGA 3 SUPPLEMENT
  2. IBANDRONIC ACID. [Suspect]
     Active Substance: IBANDRONIC ACID
     Route: 048
     Dates: start: 201001
  3. OSCAL [Concomitant]
     Active Substance: CALCIUM CARBONATE
  4. IBANDRONIC ACID. [Suspect]
     Active Substance: IBANDRONIC ACID
     Indication: OSTEOARTHRITIS
     Route: 048
     Dates: start: 2006, end: 200903
  5. VITAMIN D2 [Concomitant]
     Active Substance: ERGOCALCIFEROL

REACTIONS (5)
  - Spinal compression fracture [Unknown]
  - Breast cancer [Unknown]
  - Pulmonary embolism [Unknown]
  - International normalised ratio decreased [Unknown]
  - Musculoskeletal pain [Unknown]

NARRATIVE: CASE EVENT DATE: 20080201
